FAERS Safety Report 18727313 (Version 1)
Quarter: 2021Q1

REPORT INFORMATION
  Report Type: Spontaneous
  Country: US (occurrence: US)
  Receive Date: 20210112
  Receipt Date: 20210112
  Transmission Date: 20210419
  Serious: Yes (Life-Threatening, Hospitalization, Other)
  Sender: FDA-Public Use
  Company Number: US-HIKMA PHARMACEUTICALS USA INC.-US-H14001-21-53285

PATIENT
  Age: 18 Year
  Sex: Female

DRUGS (1)
  1. DILTIAZEM. [Suspect]
     Active Substance: DILTIAZEM
     Indication: PRODUCT USED FOR UNKNOWN INDICATION
     Dosage: 10 OF HER MOTHER?S DILTIAZEM PILLS
     Route: 065

REACTIONS (4)
  - Nodal rhythm [Recovered/Resolved]
  - Intentional overdose [Recovered/Resolved]
  - Atrioventricular dissociation [Recovered/Resolved]
  - Atrioventricular block complete [Recovered/Resolved]
